FAERS Safety Report 8076392-1 (Version None)
Quarter: 2012Q1

REPORT INFORMATION
  Report Type: 
  Country: None (occurrence: None)
  Receive Date: 20120127
  Receipt Date: 20120127
  Transmission Date: 20120608
  Serious: No
  Sender: FDA-Public Use
  Company Number: None

PATIENT
  Age: 47 Year
  Sex: Female
  Weight: 84.368 kg

DRUGS (1)
  1. BUTRANS [Suspect]
     Indication: PAIN
     Dosage: 5 MICROGRAMS
     Route: 062
     Dates: start: 20120118, end: 20120118

REACTIONS (6)
  - CONTRAINDICATION TO MEDICAL TREATMENT [None]
  - HYPOAESTHESIA ORAL [None]
  - PARAESTHESIA ORAL [None]
  - PRURITUS GENERALISED [None]
  - CONVULSION [None]
  - SOMNOLENCE [None]
